FAERS Safety Report 17277260 (Version 1)
Quarter: 2020Q1

REPORT INFORMATION
  Report Type: Spontaneous
  Country: US (occurrence: US)
  Receive Date: 20200116
  Receipt Date: 20200116
  Transmission Date: 20200409
  Serious: Yes (Hospitalization, Other)
  Sender: FDA-Public Use
  Company Number: US-VELOXIS PHARMACEUTICALS-2020VELUS-000007

PATIENT
  Age: 45 Year
  Sex: Male

DRUGS (5)
  1. GANCICLOVIR. [Suspect]
     Active Substance: GANCICLOVIR
     Indication: LUNG TRANSPLANT
     Route: 065
  2. SULFAMETHOXAZOLE AND TRIMETHOPRIM [Suspect]
     Active Substance: SULFAMETHOXAZOLE\TRIMETHOPRIM
     Indication: LUNG TRANSPLANT
     Route: 065
  3. PANCREATIC ENZYMES [Suspect]
     Active Substance: UNSPECIFIED INGREDIENT
     Indication: LUNG TRANSPLANT
     Route: 065
  4. ENVARSUS XR [Suspect]
     Active Substance: TACROLIMUS
     Indication: LUNG TRANSPLANT
     Dosage: UNK
     Route: 065
  5. PREDNISONE. [Suspect]
     Active Substance: PREDNISONE
     Indication: LUNG TRANSPLANT
     Route: 065

REACTIONS (11)
  - Pharyngeal abscess [Unknown]
  - Dysphonia [Unknown]
  - Nerve compression [Unknown]
  - Paraesthesia [Unknown]
  - Musculoskeletal pain [Unknown]
  - Muscle injury [Unknown]
  - Off label use [Unknown]
  - Pyrexia [Unknown]
  - Joint range of motion decreased [Unknown]
  - Streptococcal bacteraemia [Unknown]
  - Neck pain [Unknown]
